FAERS Safety Report 6992144-5 (Version None)
Quarter: 2010Q3

REPORT INFORMATION
  Report Type: 
  Country: None (occurrence: None)
  Receive Date: 20100917
  Receipt Date: 20100908
  Transmission Date: 20110219
  Serious: Yes (Other)
  Sender: FDA-Public Use
  Company Number: JP-ASTRAZENECA-2010SE42768

PATIENT
  Age: 78 Year
  Sex: Male

DRUGS (1)
  1. IRESSA [Suspect]
     Route: 048
     Dates: start: 20100901, end: 20100907

REACTIONS (6)
  - DELIRIUM [None]
  - HALLUCINATION [None]
  - MUSCLE RIGIDITY [None]
  - PARKINSONISM [None]
  - TORTICOLLIS [None]
  - TREMOR [None]
